FAERS Safety Report 6875170-6 (Version None)
Quarter: 2010Q3

REPORT INFORMATION
  Report Type: 
  Country: None (occurrence: None)
  Receive Date: 20100727
  Receipt Date: 20100716
  Transmission Date: 20110219
  Serious: Yes (Other)
  Sender: FDA-Public Use
  Company Number: US-PURDUE-USA-2010-0044301

PATIENT
  Sex: Female

DRUGS (2)
  1. OXYCONTIN [Suspect]
     Indication: PRODUCT USED FOR UNKNOWN INDICATION
     Dosage: 400 MG, DAILY
     Dates: start: 20050615, end: 20100521
  2. ANTIDEPRESSANTS [Suspect]
     Indication: PRODUCT USED FOR UNKNOWN INDICATION
     Dosage: UNK

REACTIONS (6)
  - DRUG WITHDRAWAL SYNDROME [None]
  - MOOD SWINGS [None]
  - NAUSEA [None]
  - SUICIDAL IDEATION [None]
  - TREMOR [None]
  - VOMITING [None]
